FAERS Safety Report 9205000 (Version 1)
Quarter: 2013Q2

REPORT INFORMATION
  Report Type: Spontaneous
  Country: TR (occurrence: TR)
  Receive Date: 20130402
  Receipt Date: 20130402
  Transmission Date: 20140414
  Serious: Yes (Hospitalization, Other)
  Sender: FDA-Public Use
  Company Number: TR-MYLANLABS-2013S1006228

PATIENT
  Age: 48 Year
  Sex: Male

DRUGS (3)
  1. FLUOROURACIL [Suspect]
     Indication: GASTRIC CANCER STAGE IV
     Dosage: 400 MG/M2 BOLUS, THEN 2400 MG/M2 46H INFUSION
     Route: 050
  2. FOLINIC ACID [Suspect]
     Indication: GASTRIC CANCER STAGE IV
     Dosage: 400 MG/M2
     Route: 050
  3. IRINOTECAN [Concomitant]
     Indication: GASTRIC CANCER STAGE IV
     Dosage: 180 MG/M2
     Route: 050

REACTIONS (1)
  - Stress cardiomyopathy [Recovered/Resolved]
